FAERS Safety Report 19007794 (Version 1)
Quarter: 2021Q1

REPORT INFORMATION
  Report Type: Spontaneous
  Country: HU (occurrence: HU)
  Receive Date: 20210315
  Receipt Date: 20210315
  Transmission Date: 20210420
  Serious: Yes (Other)
  Sender: FDA-Public Use
  Company Number: HU-PFIZER INC-2021233415

PATIENT
  Sex: Female

DRUGS (8)
  1. PF?05280586 [Suspect]
     Active Substance: INVESTIGATIONAL BIOSIMILARS
     Indication: PALLIATIVE CARE
     Route: 065
     Dates: end: 202102
  2. MEROPENEM. [Concomitant]
     Active Substance: MEROPENEM
     Indication: INFLAMMATION
     Route: 065
  3. REVLIMID [Concomitant]
     Active Substance: LENALIDOMIDE
     Dosage: 1 MG  (1X)
     Route: 065
     Dates: start: 20160201
  4. REVLIMID [Concomitant]
     Active Substance: LENALIDOMIDE
     Indication: PRODUCT USED FOR UNKNOWN INDICATION
     Route: 065
  5. JAKAVI [RUXOLITINIB] [Suspect]
     Active Substance: RUXOLITINIB
     Indication: PALLIATIVE CARE
     Route: 065
     Dates: end: 202102
  6. VENETOCLAX. [Concomitant]
     Active Substance: VENETOCLAX
     Indication: PALLIATIVE CARE
     Route: 065
     Dates: start: 2020
  7. DEXAMETHASONE. [Suspect]
     Active Substance: DEXAMETHASONE
     Indication: PALLIATIVE CARE
     Route: 065
  8. VIDAZA [Concomitant]
     Active Substance: AZACITIDINE
     Indication: PALLIATIVE CARE
     Route: 065
     Dates: start: 202102

REACTIONS (2)
  - Monocytosis [Recovered/Resolved]
  - Acute myeloid leukaemia [Unknown]

NARRATIVE: CASE EVENT DATE: 20200103
